FAERS Safety Report 18464927 (Version 1)
Quarter: 2020Q4

REPORT INFORMATION
  Report Type: Spontaneous
  Country: DE (occurrence: DE)
  Receive Date: 20201104
  Receipt Date: 20201104
  Transmission Date: 20210114
  Serious: Yes (Life-Threatening, Other)
  Sender: FDA-Public Use
  Company Number: DE-GILEAD-2020-0502611

PATIENT
  Sex: Female
  Weight: 62 kg

DRUGS (7)
  1. ASPIRIN. [Concomitant]
     Active Substance: ASPIRIN
  2. FAMOTIDINE. [Concomitant]
     Active Substance: FAMOTIDINE
  3. ATORVASTATIN [Concomitant]
     Active Substance: ATORVASTATIN
  4. DEXAMETHASONE. [Concomitant]
     Active Substance: DEXAMETHASONE
     Dosage: 6 MG, QD
  5. REMDESIVIR. [Suspect]
     Active Substance: REMDESIVIR
     Indication: COVID-19
     Dosage: 200 MG, ONCE
     Route: 042
     Dates: start: 20201023, end: 20201023
  6. ENOXAPARIN [Suspect]
     Active Substance: ENOXAPARIN
     Indication: PRODUCT USED FOR UNKNOWN INDICATION
     Dosage: 0.6 ML, BID
     Route: 058
     Dates: start: 20201026, end: 20201031
  7. REMDESIVIR. [Suspect]
     Active Substance: REMDESIVIR
     Dosage: 100 MG, QD
     Route: 042
     Dates: start: 20201024, end: 20201027

REACTIONS (1)
  - Shock haemorrhagic [Unknown]

NARRATIVE: CASE EVENT DATE: 20201102
